FAERS Safety Report 6032725-9 (Version None)
Quarter: 2009Q1

REPORT INFORMATION
  Report Type: 
  Country: None (occurrence: None)
  Receive Date: 20090109
  Receipt Date: 20081229
  Transmission Date: 20090719
  Serious: Yes (Other)
  Sender: FDA-Public Use
  Company Number: US-PFIZER INC-2008160820

PATIENT
  Sex: Male
  Weight: 64.399 kg

DRUGS (1)
  1. VIAGRA [Suspect]
     Indication: ERECTILE DYSFUNCTION
     Dosage: EVERYDAY PRN
     Route: 048

REACTIONS (2)
  - RADICAL PROSTATECTOMY [None]
  - RHEUMATOID ARTHRITIS [None]
